FAERS Safety Report 7488552-9 (Version None)
Quarter: 2011Q2

REPORT INFORMATION
  Report Type: 
  Country: None (occurrence: None)
  Receive Date: 20110518
  Receipt Date: 20110506
  Transmission Date: 20111010
  Serious: Yes (Other)
  Sender: FDA-Public Use
  Company Number: US-CELGENEUS-163-21880-11051426

PATIENT
  Sex: Male

DRUGS (1)
  1. REVLIMID [Suspect]
     Indication: MULTIPLE MYELOMA
     Dosage: 10 MILLIGRAM
     Route: 048
     Dates: start: 20090325

REACTIONS (15)
  - CARDIAC DISORDER [None]
  - PLATELET COUNT DECREASED [None]
  - RENAL FAILURE [None]
  - ROAD TRAFFIC ACCIDENT [None]
  - THROMBOSIS [None]
  - DIZZINESS [None]
  - VISUAL IMPAIRMENT [None]
  - UPPER RESPIRATORY TRACT INFECTION [None]
  - AGGRESSION [None]
  - RASH [None]
  - NASOPHARYNGITIS [None]
  - CARDIAC PACEMAKER INSERTION [None]
  - HEARING IMPAIRED [None]
  - ROSACEA [None]
  - BACK PAIN [None]
